FAERS Safety Report 19567199 (Version 12)
Quarter: 2021Q3

REPORT INFORMATION
  Report Type: Report from Study
  Country: CN (occurrence: CN)
  Receive Date: 20210715
  Receipt Date: 20210916
  Transmission Date: 20211014
  Serious: Yes (Death, Life-Threatening, Hospitalization)
  Sender: FDA-Public Use
  Company Number: CN-ROCHE-2868540

PATIENT
  Age: 50 Year
  Sex: Male
  Weight: 61.8 kg

DRUGS (55)
  1. GLOFITAMAB. [Suspect]
     Active Substance: GLOFITAMAB
     Indication: DIFFUSE LARGE B-CELL LYMPHOMA REFRACTORY
     Dosage: START DATE OF MOST RECENT DOSE OF STUDY DRUG PRIOR TO SAE 08/JUL/2021?DOSE LAST STUDY DRUG ADMIN PRI
     Route: 042
     Dates: start: 20210611
  2. METHYLPREDNISOLONE. [Concomitant]
     Active Substance: METHYLPREDNISOLONE
     Indication: PREMEDICATION
     Route: 042
     Dates: start: 20210611, end: 20210611
  3. DIPHENHYDRAMINE. [Concomitant]
     Active Substance: DIPHENHYDRAMINE
     Route: 042
     Dates: start: 20210708, end: 20210708
  4. DEXAMETHASONE. [Concomitant]
     Active Substance: DEXAMETHASONE
     Route: 042
     Dates: start: 20210709, end: 20210712
  5. DEXAMETHASONE. [Concomitant]
     Active Substance: DEXAMETHASONE
     Route: 042
     Dates: start: 20210713, end: 20210715
  6. PALONOSETRON. [Concomitant]
     Active Substance: PALONOSETRON HYDROCHLORIDE
     Route: 042
     Dates: start: 20210612, end: 20210612
  7. CEFOPERAZONE;SULBACTAM [Concomitant]
     Active Substance: CEFOPERAZONE\SULBACTAM
     Route: 042
     Dates: start: 20210709
  8. EPRAZOLE [OMEPRAZOLE] [Concomitant]
     Route: 042
     Dates: start: 20210708, end: 20210708
  9. PARECOXIB SODIUM. [Concomitant]
     Active Substance: PARECOXIB SODIUM
     Indication: ABDOMINAL PAIN
     Route: 042
     Dates: start: 20210709, end: 20210709
  10. SODIUM CHLORIDE. [Concomitant]
     Active Substance: SODIUM CHLORIDE
     Route: 042
     Dates: start: 20210709, end: 20210709
  11. DIPHENHYDRAMINE. [Concomitant]
     Active Substance: DIPHENHYDRAMINE
     Route: 030
     Dates: start: 20210611, end: 20210611
  12. DEXAMETHASONE. [Concomitant]
     Active Substance: DEXAMETHASONE
     Route: 042
     Dates: start: 20210612, end: 20210615
  13. RABEPRAZOLE SODIUM. [Concomitant]
     Active Substance: RABEPRAZOLE SODIUM
     Route: 042
     Dates: start: 20210612, end: 20210612
  14. MAGNESIUM SULFATE. [Concomitant]
     Active Substance: MAGNESIUM SULFATE
     Route: 042
     Dates: start: 20210722, end: 20210722
  15. EPRAZOLE [OMEPRAZOLE] [Concomitant]
     Route: 048
     Dates: start: 20210709, end: 20210709
  16. DOPAMINE [Concomitant]
     Active Substance: DOPAMINE HYDROCHLORIDE
     Indication: HYPOTENSION
     Route: 042
     Dates: start: 20210717, end: 20210717
  17. CEFOPERAZONE;SULBACTAM [Concomitant]
     Active Substance: CEFOPERAZONE\SULBACTAM
     Route: 042
     Dates: start: 20210717
  18. ANISODAMINE [Concomitant]
     Active Substance: ANISODAMINE
     Route: 030
     Dates: start: 20210722, end: 20210722
  19. PREDNISONE. [Concomitant]
     Active Substance: PREDNISONE
     Indication: PROPHYLAXIS
     Route: 048
     Dates: start: 20210709, end: 20210709
  20. EPRAZOLE [OMEPRAZOLE] [Concomitant]
     Route: 042
     Dates: start: 20210611, end: 20210611
  21. SODIUM BICARBONATE. [Concomitant]
     Active Substance: SODIUM BICARBONATE
     Route: 042
     Dates: start: 20210707, end: 20210708
  22. ALLOPURINOL. [Concomitant]
     Active Substance: ALLOPURINOL
     Route: 048
     Dates: start: 20210708, end: 20210708
  23. TRAMADOL. [Concomitant]
     Active Substance: TRAMADOL
     Route: 030
     Dates: start: 20210722, end: 20210722
  24. MORPHINE [Concomitant]
     Active Substance: MORPHINE
     Indication: ABDOMINAL PAIN
     Route: 055
     Dates: start: 20210709, end: 20210709
  25. HUMAN ALBUMIN [Concomitant]
     Active Substance: ALBUMIN HUMAN
     Indication: HYPOALBUMINAEMIA
     Route: 042
     Dates: start: 20210709
  26. CEFUROXIME SAMMY (UNK INGREDIENTS) [Concomitant]
     Indication: POLYURIA
     Route: 042
     Dates: start: 20210711
  27. POTASSIUM CHLORIDE. [Concomitant]
     Active Substance: POTASSIUM CHLORIDE
     Route: 042
     Dates: start: 20210612, end: 20210615
  28. POTASSIUM CHLORIDE. [Concomitant]
     Active Substance: POTASSIUM CHLORIDE
     Route: 042
     Dates: start: 20210709
  29. MAGNESIUM SULFATE. [Concomitant]
     Active Substance: MAGNESIUM SULFATE
     Route: 042
     Dates: start: 20210612, end: 20210615
  30. CALCIUM [Concomitant]
     Active Substance: CALCIUM
     Route: 042
     Dates: start: 20210612, end: 20210615
  31. ALUMINUM MAGNESIUM CARBONATE TABLETS [Concomitant]
     Route: 048
     Dates: start: 20210721
  32. ILAPRAZOLE [Concomitant]
     Active Substance: ILAPRAZOLE
     Route: 042
     Dates: start: 20210709, end: 20210709
  33. DIPHENHYDRAMINE. [Concomitant]
     Active Substance: DIPHENHYDRAMINE
     Route: 042
     Dates: start: 20210612, end: 20210612
  34. POTASSIUM [Concomitant]
     Active Substance: POTASSIUM
     Route: 042
     Dates: start: 20210612, end: 20210615
  35. GLUCOSE [Concomitant]
     Active Substance: DEXTROSE
     Route: 042
     Dates: start: 20210612, end: 20210615
  36. PARECOXIB SODIUM. [Concomitant]
     Active Substance: PARECOXIB SODIUM
     Route: 042
     Dates: start: 20210710, end: 20210711
  37. CALCIUM GLUCONATE. [Concomitant]
     Active Substance: CALCIUM GLUCONATE
     Indication: NUTRITIONAL SUPPLEMENTATION
     Route: 042
     Dates: start: 20210709
  38. INSULIN [Concomitant]
     Active Substance: INSULIN NOS
     Route: 055
     Dates: start: 20210718
  39. CILASTATIN SODIUM [Concomitant]
     Active Substance: CILASTATIN SODIUM
     Route: 042
     Dates: start: 20210709
  40. OBINUTUZUMAB. [Suspect]
     Active Substance: OBINUTUZUMAB
     Indication: DIFFUSE LARGE B-CELL LYMPHOMA REFRACTORY
     Dosage: START DATE OF MOST RECENT DOSE OF STUDY DRUG PRIOR TO SAE 04/JUN/2021?DOSE LAST STUDY DRUG ADMIN PRI
     Route: 042
     Dates: start: 20210604
  41. TOCILIZUMAB. [Suspect]
     Active Substance: TOCILIZUMAB
     Indication: DIFFUSE LARGE B-CELL LYMPHOMA REFRACTORY
     Dosage: DOSE LAST STUDY DRUG ADMIN PRIOR SAE 1000 MG?START DATE OF MOST RECENT DOSE OF STUDY DRUG PRIOR TO S
     Route: 042
     Dates: start: 20210709
  42. METHYLPREDNISOLONE. [Concomitant]
     Active Substance: METHYLPREDNISOLONE
     Route: 042
     Dates: start: 20210708, end: 20210708
  43. CELECOXIB. [Concomitant]
     Active Substance: CELECOXIB
     Route: 048
     Dates: start: 20210611, end: 20210611
  44. POLYENE PHOSPHOLIPID CAPSULES (UNK INGREDIENTS) [Concomitant]
     Route: 048
     Dates: start: 20210617, end: 20210707
  45. AMIDOPYRINE [Concomitant]
     Route: 042
     Dates: start: 20210709, end: 20210709
  46. ANISODAMINE [Concomitant]
     Active Substance: ANISODAMINE
     Indication: MUSCLE SPASMS
     Route: 030
     Dates: start: 20210709, end: 20210709
  47. SODIUM CHLORIDE. [Concomitant]
     Active Substance: SODIUM CHLORIDE
     Route: 042
     Dates: start: 20210709
  48. IMIPENEM [Concomitant]
     Active Substance: IMIPENEM
     Route: 042
     Dates: start: 20210709
  49. EPRAZOLE [OMEPRAZOLE] [Concomitant]
     Route: 048
     Dates: start: 20210709, end: 20210709
  50. BICYCLOL [Concomitant]
     Active Substance: BICYCLOL
     Route: 048
     Dates: start: 20210617, end: 20210707
  51. GLUCOSE [Concomitant]
     Active Substance: DEXTROSE
     Route: 042
     Dates: start: 20210709
  52. CEFOPERAZONE;SULBACTAM [Concomitant]
     Active Substance: CEFOPERAZONE\SULBACTAM
     Route: 042
     Dates: start: 20210709, end: 20210709
  53. TRAMADOL. [Concomitant]
     Active Substance: TRAMADOL
     Indication: ABDOMINAL PAIN
     Route: 030
     Dates: start: 20210709, end: 20210709
  54. INSULIN [Concomitant]
     Active Substance: INSULIN NOS
     Route: 042
     Dates: start: 20210709
  55. LIDOCAINE. [Concomitant]
     Active Substance: LIDOCAINE
     Indication: ANAESTHESIA
     Route: 042
     Dates: start: 20210723, end: 20210723

REACTIONS (4)
  - Anaemia [Recovering/Resolving]
  - Peritonitis [Recovering/Resolving]
  - Pancreatitis [Recovering/Resolving]
  - Cytokine release syndrome [Recovered/Resolved]

NARRATIVE: CASE EVENT DATE: 20210709
